FAERS Safety Report 8007570-5 (Version None)
Quarter: 2011Q4

REPORT INFORMATION
  Report Type: 
  Country: None (occurrence: None)
  Receive Date: 20111222
  Receipt Date: 20111222
  Transmission Date: 20120403
  Serious: Yes (Other)
  Sender: FDA-Public Use
  Company Number: None

PATIENT
  Sex: Male
  Weight: 90.7194 kg

DRUGS (2)
  1. OLANZAPINE [Suspect]
     Indication: PSYCHOTIC DISORDER
     Dosage: 20 MG ONE QHS PO (047)
     Route: 048
     Dates: start: 20111101
  2. GABAPENTIN [Concomitant]

REACTIONS (2)
  - HEADACHE [None]
  - PRODUCT SUBSTITUTION ISSUE [None]
